FAERS Safety Report 10478797 (Version 1)
Quarter: 2014Q3

REPORT INFORMATION
  Report Type: Spontaneous
  Country: US (occurrence: US)
  Receive Date: 20140926
  Receipt Date: 20140926
  Transmission Date: 20150326
  Serious: Yes (Other)
  Sender: FDA-Public Use
  Company Number: US-PFIZER INC-2014263573

PATIENT
  Age: 69 Year
  Sex: Female

DRUGS (1)
  1. XANAX [Suspect]
     Active Substance: ALPRAZOLAM
     Dosage: UNK

REACTIONS (6)
  - Dizziness [Unknown]
  - Asthenia [Unknown]
  - Withdrawal syndrome [Unknown]
  - Shock [Unknown]
  - Nausea [Unknown]
  - Syncope [Unknown]
